FAERS Safety Report 5877501-2 (Version None)
Quarter: 2008Q3

REPORT INFORMATION
  Report Type: 
  Country: None (occurrence: None)
  Receive Date: 20080909
  Receipt Date: 20080904
  Transmission Date: 20090109
  Serious: Yes (Death)
  Sender: FDA-Public Use
  Company Number: CLOF-1000146

PATIENT
  Age: 54 Year
  Sex: Male
  Weight: 74.3 kg

DRUGS (13)
  1. CLOFARABINE (CLOFARABINE) SOLUTION FOR INFUSION [Suspect]
     Indication: ACUTE MYELOID LEUKAEMIA
     Dosage: 40 MG/M2, QDX5, INTRAVENOUS
     Route: 042
     Dates: start: 20080327, end: 20080331
  2. CYTARABINE [Suspect]
     Indication: ACUTE MYELOID LEUKAEMIA
     Dosage: 1 G/M2, QDX5, INTRAVENOUS
     Route: 042
     Dates: start: 20080327, end: 20080331
  3. THYMOGLOBULIN [Suspect]
     Indication: ACUTE MYELOID LEUKAEMIA
     Dosage: 1 MG/KG, ONCE, INTRAVENOUS 2.5 MG/KG, QD, INTRAVENOUS
     Route: 042
     Dates: start: 20080329, end: 20080329
  4. THYMOGLOBULIN [Suspect]
     Indication: ACUTE MYELOID LEUKAEMIA
     Dosage: 1 MG/KG, ONCE, INTRAVENOUS 2.5 MG/KG, QD, INTRAVENOUS
     Route: 042
     Dates: start: 20080330, end: 20080331
  5. VALTREX [Concomitant]
  6. ANIDULAFUNGIN [Concomitant]
  7. CEFEPIME [Concomitant]
  8. DEXAMETHASONE [Concomitant]
  9. NEXIUM (ESOMEPRAZOLE SODIUM) [Concomitant]
  10. FAMOTIDINE [Concomitant]
  11. SINGULAIR [Concomitant]
  12. PRED FORTE [Concomitant]
  13. ACETAMINOPHEN [Concomitant]

REACTIONS (16)
  - ASTHENIA [None]
  - BLOOD CULTURE POSITIVE [None]
  - COMMUNICATION DISORDER [None]
  - HEPATIC FAILURE [None]
  - MUCOSAL DRYNESS [None]
  - MUCOSAL HAEMORRHAGE [None]
  - MUCOSAL INFLAMMATION [None]
  - MUCOUS MEMBRANE DISORDER [None]
  - MULTI-ORGAN FAILURE [None]
  - PALMAR-PLANTAR ERYTHRODYSAESTHESIA SYNDROME [None]
  - RENAL FAILURE ACUTE [None]
  - RESPIRATORY DISTRESS [None]
  - RESTLESSNESS [None]
  - STAPHYLOCOCCAL INFECTION [None]
  - TOXIC EPIDERMAL NECROLYSIS [None]
  - VENOOCCLUSIVE DISEASE [None]
